FAERS Safety Report 8151573-7 (Version None)
Quarter: 2012Q1

REPORT INFORMATION
  Report Type: 
  Country: None (occurrence: None)
  Receive Date: 20120220
  Receipt Date: 20120215
  Transmission Date: 20120608
  Serious: Yes (Life-Threatening, Hospitalization, Disabling)
  Sender: FDA-Public Use
  Company Number: DE-ROCHE-780625

PATIENT
  Sex: Female

DRUGS (2)
  1. MABTHERA [Suspect]
     Dosage: INTRAVENOUS (NOT OTHERWISE SPECIFIED), 375 MG/M2, 6 SEPARATE DOSE
     Route: 042
     Dates: start: 20100504, end: 20100621
  2. MABTHERA [Suspect]
     Indication: B-CELL LYMPHOMA STAGE I
     Dosage: 375 MG/M2, 6 SEPARATE DOSE
     Route: 042
     Dates: start: 20100112, end: 20100407

REACTIONS (3)
  - DEMENTIA [None]
  - PROGRESSIVE MULTIFOCAL LEUKOENCEPHALOPATHY [None]
  - MOTOR DYSFUNCTION [None]
